FAERS Safety Report 6275758-X (Version None)
Quarter: 2009Q3

REPORT INFORMATION
  Report Type: 
  Country: None (occurrence: None)
  Receive Date: 20090721
  Receipt Date: 20090710
  Transmission Date: 20100115
  Serious: Yes (Other)
  Sender: FDA-Public Use
  Company Number: US-SANOFI-SYNTHELABO-A03200604261

PATIENT
  Age: 35 Year
  Sex: Male

DRUGS (1)
  1. AMBIEN CR [Suspect]
     Indication: DRUG USE FOR UNKNOWN INDICATION
     Route: 048
     Dates: start: 20060630, end: 20060701

REACTIONS (7)
  - AMNESIA [None]
  - BRADYPHRENIA [None]
  - CONFUSIONAL STATE [None]
  - IMPAIRED DRIVING ABILITY [None]
  - INTENTIONAL OVERDOSE [None]
  - ROAD TRAFFIC ACCIDENT [None]
  - SOMNOLENCE [None]
